FAERS Safety Report 7785882-8 (Version None)
Quarter: 2011Q3

REPORT INFORMATION
  Report Type: 
  Country: None (occurrence: None)
  Receive Date: 20110929
  Receipt Date: 20110630
  Transmission Date: 20111222
  Serious: No
  Sender: FDA-Public Use
  Company Number: US-BAYER-2011-058783

PATIENT
  Sex: Female

DRUGS (1)
  1. ALEVE (CAPLET) [Suspect]
     Indication: HEADACHE
     Dosage: USED 5 ALEVE WITHIN 3 HOURS
     Route: 048
     Dates: start: 20110629

REACTIONS (1)
  - NO ADVERSE EVENT [None]
